FAERS Safety Report 9079643 (Version 1)
Quarter: 2013Q1

REPORT INFORMATION
  Report Type: Spontaneous
  Country: US (occurrence: US)
  Receive Date: 20130215
  Receipt Date: 20130215
  Transmission Date: 20140127
  Serious: Yes (Hospitalization)
  Sender: FDA-Public Use
  Company Number: US-GLAXOSMITHKLINE-A0717657A

PATIENT
  Age: 66 Year
  Sex: Female
  Weight: 80.9 kg

DRUGS (2)
  1. AVANDIA [Suspect]
     Indication: DIABETES MELLITUS
     Dosage: 4MG PER DAY
     Route: 048
     Dates: start: 2004, end: 200705
  2. GLUCOPHAGE [Concomitant]
     Dates: start: 2004

REACTIONS (4)
  - Cerebrovascular accident [Unknown]
  - Visual acuity reduced [Unknown]
  - Chest pain [Unknown]
  - Visual impairment [Unknown]
